FAERS Safety Report 16763107 (Version 2)
Quarter: 2019Q4

REPORT INFORMATION
  Report Type: Spontaneous
  Country: US (occurrence: US)
  Receive Date: 20190902
  Receipt Date: 20191126
  Transmission Date: 20200122
  Serious: No
  Sender: FDA-Public Use
  Company Number: US-GILEAD-2019-0425949

PATIENT
  Age: 43 Year
  Sex: Male

DRUGS (1)
  1. TRUVADA [Suspect]
     Active Substance: EMTRICITABINE\TENOFOVIR DISOPROXIL FUMARATE
     Indication: HIV INFECTION
     Dosage: 1 DOSAGE FORM, QD
     Route: 065
     Dates: start: 2000

REACTIONS (5)
  - Renal disorder [Unknown]
  - Malaise [Unknown]
  - Tooth loss [Unknown]
  - Blood creatinine increased [Recovering/Resolving]
  - Bone loss [Unknown]
